FAERS Safety Report 17345998 (Version 1)
Quarter: 2020Q1

REPORT INFORMATION
  Report Type: Spontaneous
  Country: US (occurrence: US)
  Receive Date: 20200129
  Receipt Date: 20200129
  Transmission Date: 20200409
  Serious: No
  Sender: FDA-Public Use
  Company Number: US-BIOMARINAP-US-2019-127552

PATIENT
  Sex: Female
  Weight: 63.49 kg

DRUGS (2)
  1. ZYRTEC [Concomitant]
     Active Substance: CETIRIZINE HYDROCHLORIDE
     Indication: PRODUCT USED FOR UNKNOWN INDICATION
  2. PALYNZIQ [Suspect]
     Active Substance: PEGVALIASE-PQPZ
     Indication: PHENYLKETONURIA
     Dosage: 2.5 MILLIGRAM, SINGLE
     Route: 058
     Dates: start: 20191203

REACTIONS (5)
  - Rash [Recovering/Resolving]
  - Hypoaesthesia [Recovering/Resolving]
  - Grip strength decreased [Recovering/Resolving]
  - Injection site rash [Recovering/Resolving]
  - Arthralgia [Recovering/Resolving]
